FAERS Safety Report 22128192 (Version 1)
Quarter: 2023Q1

REPORT INFORMATION
  Report Type: Spontaneous
  Country: US (occurrence: None)
  Receive Date: 20230323
  Receipt Date: 20230323
  Transmission Date: 20230418
  Serious: Yes (Hospitalization)
  Sender: FDA-Public Use
  Company Number: US-ROCHE-3313447

PATIENT
  Age: 45 Year
  Sex: Female

DRUGS (2)
  1. CELLCEPT [Suspect]
     Active Substance: MYCOPHENOLATE MOFETIL
     Indication: Systemic lupus erythematosus
     Route: 048
     Dates: start: 202001
  2. HYDROXYCHLOROQUINE [Concomitant]
     Active Substance: HYDROXYCHLOROQUINE

REACTIONS (8)
  - COVID-19 [Unknown]
  - Rash [Not Recovered/Not Resolved]
  - Influenza like illness [Unknown]
  - Fatigue [Unknown]
  - Asthenia [Unknown]
  - Lip injury [Unknown]
  - Immunodeficiency [Unknown]
  - Off label use [Unknown]

NARRATIVE: CASE EVENT DATE: 20220201
